FAERS Safety Report 8524720-2 (Version None)
Quarter: 2012Q3

REPORT INFORMATION
  Report Type: 
  Country: None (occurrence: None)
  Receive Date: 20120720
  Receipt Date: 20120706
  Transmission Date: 20120928
  Serious: Yes (Hospitalization, Other)
  Sender: FDA-Public Use
  Company Number: US-ELI_LILLY_AND_COMPANY-US201207002271

PATIENT
  Age: 56 Year
  Sex: Female

DRUGS (6)
  1. ASPIRIN [Concomitant]
     Dosage: 81 MG, QD
  2. HYDREA [Concomitant]
     Dosage: 500 MG, QD
  3. CYMBALTA [Suspect]
     Indication: DEPRESSION
     Dosage: 30 MG, QD
  4. CALCIUM [Concomitant]
     Dosage: 1200 IU, UNK
  5. SINGULAIR [Concomitant]
     Dosage: 10 MG, UNK
  6. VITAMIN D [Concomitant]
     Dosage: 1000 IU, UNK

REACTIONS (2)
  - DYSPHAGIA [None]
  - LIP AND/OR ORAL CAVITY CANCER [None]
